FAERS Safety Report 8336212-4 (Version None)
Quarter: 2012Q2

REPORT INFORMATION
  Report Type: 
  Country: None (occurrence: None)
  Receive Date: 20120504
  Receipt Date: 20120430
  Transmission Date: 20120825
  Serious: Yes (Death)
  Sender: FDA-Public Use
  Company Number: US-CELGENEUS-163-21880-12040853

PATIENT
  Sex: Female

DRUGS (15)
  1. INSULIN ASPART [Concomitant]
     Dosage: 100/ML
     Route: 065
  2. PROCHLORPERAZINE MALEATE [Concomitant]
     Indication: NAUSEA
     Dosage: 10 MILLIGRAM
     Route: 048
  3. REVLIMID [Suspect]
     Indication: MULTIPLE MYELOMA
     Dosage: 15 MILLIGRAM
     Route: 048
     Dates: start: 20100430, end: 20110926
  4. ATENOLOL [Concomitant]
     Dosage: 50 MILLIGRAM
     Route: 048
  5. DEXAMETHASONE [Concomitant]
     Dosage: 4 MILLIGRAM
     Route: 048
  6. VITAMIN B-12 [Concomitant]
     Indication: PAIN
     Dosage: 100 MILLIGRAM
     Route: 048
  7. VITAMIN D [Concomitant]
     Dosage: 1000 UNIT
     Route: 048
  8. COUMADIN [Concomitant]
     Route: 048
  9. ACETAMINOPHEN [Concomitant]
     Dosage: 650 MILLIGRAM
     Route: 048
  10. CITALOPRAM HYDROBROMIDE [Concomitant]
     Dosage: 10 MILLIGRAM
     Route: 048
  11. ACETAMINOPHEN [Concomitant]
     Dosage: 500MG/5ML
     Route: 048
  12. CALCIUM 500 + D [Concomitant]
     Dosage: 500MG-400
     Route: 048
  13. GLIMEPIRIDE [Concomitant]
     Dosage: 2 MILLIGRAM
     Route: 048
  14. VICODIN [Concomitant]
     Indication: PAIN
     Dosage: 5MG-500MG
     Route: 048
  15. TRAZODONE HCL [Concomitant]
     Dosage: 25 TO 50MG
     Route: 048

REACTIONS (1)
  - MULTIPLE MYELOMA [None]
